FAERS Safety Report 18475495 (Version 2)
Quarter: 2020Q4

REPORT INFORMATION
  Report Type: Report from Study
  Country: US (occurrence: US)
  Receive Date: 20201106
  Receipt Date: 20201203
  Transmission Date: 20210114
  Serious: Yes (Hospitalization, Other)
  Sender: FDA-Public Use
  Company Number: US-TAKEDA-2020TUS047891

PATIENT
  Sex: Male
  Weight: 84 kg

DRUGS (1)
  1. VEDOLIZUMAB [Suspect]
     Active Substance: VEDOLIZUMAB
     Indication: POUCHITIS
     Dosage: 300 MILLIGRAM
     Route: 042
     Dates: start: 2019

REACTIONS (3)
  - COVID-19 pneumonia [Unknown]
  - Condition aggravated [Unknown]
  - Pouchitis [Unknown]
